FAERS Safety Report 20454069 (Version 1)
Quarter: 2022Q1

REPORT INFORMATION
  Report Type: Report from Study
  Country: US (occurrence: US)
  Receive Date: 20220210
  Receipt Date: 20220210
  Transmission Date: 20220424
  Serious: No
  Sender: FDA-Public Use
  Company Number: US-NOVARTISTESTPH-NVSC2022US028379

PATIENT
  Sex: Female

DRUGS (1)
  1. XIIDRA [Suspect]
     Active Substance: LIFITEGRAST
     Indication: Dry eye
     Dosage: UNK UNK, BID
     Route: 047
     Dates: start: 2021

REACTIONS (2)
  - Vision blurred [Not Recovered/Not Resolved]
  - Dysgeusia [Not Recovered/Not Resolved]
